FAERS Safety Report 11139332 (Version 1)
Quarter: 2015Q2

REPORT INFORMATION
  Report Type: Spontaneous
  Country: US (occurrence: None)
  Receive Date: 20150526
  Receipt Date: 20150526
  Transmission Date: 20150821
  Serious: No
  Sender: FDA-Public Use
  Company Number: None

PATIENT
  Age: 39 Year
  Sex: Male
  Weight: 83.46 kg

DRUGS (15)
  1. VITAMIN [Concomitant]
     Active Substance: VITAMINS
  2. FLUOCINONIDE. [Concomitant]
     Active Substance: FLUOCINONIDE
  3. DR ARTIFICIAL TEARS [Concomitant]
  4. POWDER SIROLIMUS [Concomitant]
  5. FLUVASTATIN [Concomitant]
     Active Substance: FLUVASTATIN SODIUM
  6. OLANZAPINE. [Suspect]
     Active Substance: OLANZAPINE
     Indication: SCHIZOPHRENIA, PARANOID TYPE
     Dosage: 60MG/3 TABLETS  QD  PO
     Route: 048
  7. CHOLECALCIFEROL [Concomitant]
     Active Substance: CHOLECALCIFEROL
  8. CYCLOSPORINE. [Concomitant]
     Active Substance: CYCLOSPORINE
  9. FISH OIL [Concomitant]
     Active Substance: FISH OIL
  10. PREDNISONE. [Concomitant]
     Active Substance: PREDNISONE
  11. METAMUCIL POWDER [Concomitant]
  12. AVEENO [Concomitant]
     Active Substance: DIMETHICONE\HOMOSALATE\OCTINOXATE\OCTISALATE\TITANIUM DIOXIDE
  13. OMEPRAZOLE. [Concomitant]
     Active Substance: OMEPRAZOLE
  14. DOCUSATE [Concomitant]
     Active Substance: DOCUSATE
  15. LORAZEPAM. [Concomitant]
     Active Substance: LORAZEPAM

REACTIONS (3)
  - Delusion [None]
  - Agitation [None]
  - Violence-related symptom [None]

NARRATIVE: CASE EVENT DATE: 20150522
